APPROVED DRUG PRODUCT: ZEPBOUND
Active Ingredient: TIRZEPATIDE
Strength: 40MG/2.4ML (16.7MG/ML)
Dosage Form/Route: SOLUTION;SUBCUTANEOUS
Application: N217806 | Product #016
Applicant: ELI LILLY AND CO
Approved: Jan 7, 2026 | RLD: Yes | RS: Yes | Type: RX